FAERS Safety Report 5861656-X (Version None)
Quarter: 2008Q3

REPORT INFORMATION
  Report Type: 
  Country: None (occurrence: None)
  Receive Date: 20080826
  Receipt Date: 20080814
  Transmission Date: 20090109
  Serious: Yes (Death, Hospitalization)
  Sender: FDA-Public Use
  Company Number: 2008BI014018

PATIENT
  Age: 67 Year
  Sex: Female

DRUGS (1)
  1. AVONEX [Suspect]
     Indication: MULTIPLE SCLEROSIS
     Dosage: 30 UG;QW;IM
     Route: 030
     Dates: start: 20040325

REACTIONS (18)
  - ACUTE PULMONARY OEDEMA [None]
  - BLOOD PRESSURE DECREASED [None]
  - CARDIAC FAILURE CONGESTIVE [None]
  - DECUBITUS ULCER [None]
  - DEEP VEIN THROMBOSIS [None]
  - DEPRESSION [None]
  - DISEASE PROGRESSION [None]
  - HAEMORRHAGE [None]
  - HYPERTENSION [None]
  - JOINT CONTRACTURE [None]
  - MULTIPLE SCLEROSIS [None]
  - PNEUMONIA [None]
  - PULMONARY EMBOLISM [None]
  - RESPIRATORY DISTRESS [None]
  - STREPTOCOCCAL INFECTION [None]
  - URINARY INCONTINENCE [None]
  - VASCULAR DEMENTIA [None]
  - WOUND INFECTION STAPHYLOCOCCAL [None]
